FAERS Safety Report 4486985-6 (Version None)
Quarter: 2004Q4

REPORT INFORMATION
  Report Type: 
  Country: None (occurrence: None)
  Receive Date: 20041022
  Receipt Date: 20041006
  Transmission Date: 20050328
  Serious: Yes (Death)
  Sender: FDA-Public Use
  Company Number: 2004238575JP

PATIENT
  Age: 68 Year
  Sex: Female

DRUGS (1)
  1. SOLU-MEDROL [Suspect]
     Indication: PERICARDITIS
     Dosage: 40 MG, QD, IV
     Route: 042
     Dates: start: 20031001

REACTIONS (4)
  - DIALYSIS [None]
  - GOODPASTURE'S SYNDROME [None]
  - MICROANGIOPATHIC HAEMOLYTIC ANAEMIA [None]
  - SCLERODERMA RENAL CRISIS [None]
